FAERS Safety Report 21083360 (Version 4)
Quarter: 2022Q4

REPORT INFORMATION
  Report Type: Spontaneous
  Country: IN (occurrence: IN)
  Receive Date: 20220714
  Receipt Date: 20221230
  Transmission Date: 20230112
  Serious: Yes (Hospitalization, Other)
  Sender: FDA-Public Use
  Company Number: IN-PFIZER INC-PV202200022063

PATIENT
  Age: 53 Year
  Sex: Male

DRUGS (1)
  1. LORLATINIB [Suspect]
     Active Substance: LORLATINIB
     Indication: Non-small cell lung cancer metastatic
     Dosage: 100 MG, 1X/DAY
     Route: 048
     Dates: start: 20220609

REACTIONS (22)
  - Swelling face [Recovered/Resolved]
  - Fatigue [Recovered/Resolved]
  - Pleural effusion [Recovered/Resolved]
  - Pain in extremity [Recovered/Resolved]
  - Blood chloride increased [Recovered/Resolved]
  - Blood creatinine decreased [Recovered/Resolved]
  - Haemoglobin decreased [Recovered/Resolved]
  - Red blood cell count decreased [Recovered/Resolved]
  - Haematocrit decreased [Recovered/Resolved]
  - Mean cell haemoglobin concentration decreased [Recovered/Resolved]
  - Plateletcrit decreased [Recovered/Resolved]
  - Monocyte count increased [Recovered/Resolved]
  - Very low density lipoprotein increased [Recovered/Resolved]
  - Blood triglycerides increased [Recovered/Resolved]
  - Blood creatinine decreased [Recovered/Resolved]
  - Neutrophil count increased [Recovered/Resolved]
  - Affective disorder [Unknown]
  - Haematemesis [Unknown]
  - Rash [Unknown]
  - Vomiting [Unknown]
  - Granuloma [Recovered/Resolved]
  - Neoplasm progression [Recovered/Resolved]

NARRATIVE: CASE EVENT DATE: 20220711
